FAERS Safety Report 10371610 (Version 1)
Quarter: 2014Q3

REPORT INFORMATION
  Report Type: Spontaneous
  Country: CA (occurrence: CA)
  Receive Date: 20140808
  Receipt Date: 20140808
  Transmission Date: 20150326
  Serious: Yes (Other)
  Sender: FDA-Public Use
  Company Number: ALCN2014CA004421

PATIENT
  Age: 57 Year
  Sex: Female

DRUGS (13)
  1. TW VITAMIN E [Concomitant]
     Dosage: 1 DF, UNK
     Route: 048
  2. OMEGA 3 [Concomitant]
     Active Substance: OMEGA-3 FATTY ACIDS
     Dosage: 1 DF, UNK
     Route: 048
  3. TRUSOPT [Concomitant]
     Active Substance: DORZOLAMIDE HYDROCHLORIDE
     Dosage: 1 DF, UNK
     Route: 047
  4. VITAMIN A [Concomitant]
     Active Substance: VITAMIN A
     Dosage: 1 DF, UNK
     Route: 048
  5. MULTIVITAMIN PREPARATIONS WITH OR W/O MINERAL [Concomitant]
     Dosage: 1 DF, UNK
     Route: 048
  6. PROBIOTIC                          /07343501/ [Concomitant]
     Dosage: 1 DF, UNK
     Route: 048
  7. SELENIUM [Concomitant]
     Active Substance: SELENIUM
     Dosage: 1 DF, UNK
     Route: 048
  8. RT-ZINC [Concomitant]
     Dosage: 1 DF, UNK
     Route: 048
  9. TRAVATAN Z [Suspect]
     Active Substance: TRAVOPROST
     Dosage: 2 GTT, QD
     Route: 047
  10. COMBIGAN [Concomitant]
     Active Substance: BRIMONIDINE TARTRATE\TIMOLOL MALEATE
     Dosage: 1 DF, UNK
     Route: 047
  11. MAGNESIUM SULFATE [Concomitant]
     Active Substance: MAGNESIUM SULFATE
     Dosage: 1 DF, UNK
  12. PREDNISONE. [Concomitant]
     Active Substance: PREDNISONE
     Dosage: 1 DF, UNK
     Route: 048
  13. CHOLESTEROL- AND TRIGLYCERIDE REDUCERS [Concomitant]
     Active Substance: UNSPECIFIED INGREDIENT
     Dosage: 1 DF, UNK
     Route: 048

REACTIONS (2)
  - Visual acuity reduced [Recovered/Resolved]
  - Macular oedema [Recovered/Resolved]
